FAERS Safety Report 16431376 (Version 2)
Quarter: 2019Q3

REPORT INFORMATION
  Report Type: Report from Study
  Country: IT (occurrence: IT)
  Receive Date: 20190614
  Receipt Date: 20190801
  Transmission Date: 20191004
  Serious: Yes (Other)
  Sender: FDA-Public Use
  Company Number: IT-PFIZER INC-2019249004

PATIENT
  Age: 9 Year
  Sex: Male
  Weight: 37 kg

DRUGS (16)
  1. MYCOSTATIN [Concomitant]
     Active Substance: NYSTATIN
     Dosage: 15 ML, UNK
     Route: 048
     Dates: start: 20180720
  2. LEDERFOLIN [Concomitant]
     Active Substance: LEUCOVORIN CALCIUM
     Dosage: 78 MG, UNK
     Route: 042
     Dates: start: 20181201, end: 20181201
  3. URBASON [METHYLPREDNISOLONE] [Concomitant]
     Active Substance: METHYLPREDNISOLONE
     Dosage: 10 MG, UNK
     Route: 037
     Dates: start: 20181115, end: 20181129
  4. VINCRISTINE SULFATE. [Suspect]
     Active Substance: VINCRISTINE SULFATE
     Indication: ACUTE LYMPHOCYTIC LEUKAEMIA
     Dosage: 1.75 MG, CYCLIC
     Route: 042
     Dates: start: 20181129, end: 20181204
  5. DECADRON [Concomitant]
     Active Substance: DEXAMETHASONE
     Dosage: 23.4 MG, UNK
     Route: 042
     Dates: start: 20181129, end: 20181203
  6. METHOTREXATE SODIUM. [Suspect]
     Active Substance: METHOTREXATE SODIUM
     Dosage: 12 MG, CYCLIC
     Route: 037
     Dates: start: 20181115, end: 20181129
  7. DILATREND [Concomitant]
     Active Substance: CARVEDILOL
     Dosage: 3.12 MG, UNK
     Route: 048
  8. LEDERFOLIN [Concomitant]
     Active Substance: LEUCOVORIN CALCIUM
     Dosage: 27 MG, UNK
     Route: 042
     Dates: start: 20181202, end: 20181202
  9. UROMITEXAN [Suspect]
     Active Substance: MESNA
     Dosage: 492 MG, CYCLIC
     Route: 042
     Dates: start: 20181201, end: 20181202
  10. LASIX [Concomitant]
     Active Substance: FUROSEMIDE
     Dosage: 20 MG, UNK
     Route: 042
     Dates: start: 20181129
  11. ZOFRAN [Concomitant]
     Active Substance: ONDANSETRON HYDROCHLORIDE
     Indication: PROPHYLAXIS
     Dosage: 12 MG, UNK
     Route: 042
     Dates: start: 20181129
  12. ENDOXAN-BAXTER [Suspect]
     Active Substance: CYCLOPHOSPHAMIDE
     Indication: ACUTE LYMPHOCYTIC LEUKAEMIA
     Dosage: 468 MG, CYCLIC
     Route: 042
     Dates: start: 20181201, end: 20181202
  13. ENDOXAN-BAXTER [Suspect]
     Active Substance: CYCLOPHOSPHAMIDE
     Dosage: 234 MG, CYCLIC
     Route: 042
     Dates: start: 20181130, end: 20181130
  14. METHOTREXATE SODIUM. [Suspect]
     Active Substance: METHOTREXATE SODIUM
     Indication: ACUTE LYMPHOCYTIC LEUKAEMIA
     Dosage: 5850 MG, CYCLIC
     Route: 042
     Dates: start: 20181115, end: 20181220
  15. UROMITEXAN [Suspect]
     Active Substance: MESNA
     Indication: ACUTE LYMPHOCYTIC LEUKAEMIA
     Dosage: 82 MG, CYCLIC
     Route: 042
     Dates: start: 20181130, end: 20181130
  16. ANTRA [OMEPRAZOLE] [Concomitant]
     Active Substance: OMEPRAZOLE
     Dosage: 40 MG, UNK
     Route: 042
     Dates: start: 20181129

REACTIONS (2)
  - Proctalgia [Recovered/Resolved]
  - Anal fissure [Unknown]

NARRATIVE: CASE EVENT DATE: 20181202
